FAERS Safety Report 9695097 (Version 2)
Quarter: 2013Q4

REPORT INFORMATION
  Report Type: Report from Study
  Country: US (occurrence: US)
  Receive Date: 20131119
  Receipt Date: 20131129
  Transmission Date: 20140711
  Serious: Yes (Death)
  Sender: FDA-Public Use
  Company Number: PHEH2013US024072

PATIENT
  Sex: Female

DRUGS (2)
  1. AFINITOR [Suspect]
     Dosage: 5 MG, QD
  2. TAMOXIFEN [Concomitant]
     Route: 048

REACTIONS (2)
  - Malignant neoplasm progression [Fatal]
  - Metastases to lung [Fatal]
